FAERS Safety Report 8575471-X (Version None)
Quarter: 2012Q3

REPORT INFORMATION
  Report Type: 
  Country: None (occurrence: None)
  Receive Date: 20120807
  Receipt Date: 20120727
  Transmission Date: 20120928
  Serious: Yes (Death, Hospitalization, Other)
  Sender: FDA-Public Use
  Company Number: PHEH2010US03427

PATIENT
  Sex: Male
  Weight: 82.54 kg

DRUGS (25)
  1. CHLORHEXIDINE GLUCONATE [Concomitant]
  2. LIPITOR [Concomitant]
  3. LASIX [Concomitant]
  4. AREDIA [Suspect]
     Indication: PROSTATE CANCER
     Dosage: 90 MG, QMO
     Route: 042
     Dates: start: 19981201, end: 20071001
  5. MIRALAX [Concomitant]
  6. FERROUS SULFATE TAB [Concomitant]
  7. OXYCODONE HCL [Concomitant]
  8. GUAIFENESIN [Concomitant]
  9. PAMIDRONATE DISODIUM [Suspect]
     Dosage: UNK UKN, UNK
  10. PREDNISONE [Concomitant]
  11. DEXAMETHASONE [Concomitant]
  12. AZITHROMYCIN [Concomitant]
  13. PROMETHAZINE [Concomitant]
  14. VITAMIN A [Concomitant]
  15. TAXOTERE [Concomitant]
  16. OMEPRAZOLE [Concomitant]
  17. PENICILLIN [Concomitant]
  18. ZOMETA [Suspect]
     Indication: PROSTATE CANCER
     Dosage: 4 MG, QMO
     Route: 042
     Dates: start: 20020221, end: 20071001
  19. KETOCONAZOLE [Concomitant]
  20. CALCIUM CARBONATE [Concomitant]
  21. AMOXICILLIN [Concomitant]
     Dosage: 500 MG, UNK
  22. ADVIL [Concomitant]
     Dosage: 2 DF, BID
  23. RADIATION [Concomitant]
  24. FLUTAMIDE [Concomitant]
  25. LEVOFLOXACIN [Concomitant]

REACTIONS (46)
  - HIATUS HERNIA [None]
  - NEPHROLITHIASIS [None]
  - MICROCYTIC ANAEMIA [None]
  - MACULAR DEGENERATION [None]
  - PNEUMOCYSTIS JIROVECI PNEUMONIA [None]
  - WEIGHT DECREASED [None]
  - STRESS FRACTURE [None]
  - RENAL CYST [None]
  - FALL [None]
  - CATARACT [None]
  - METASTASES TO BONE [None]
  - FOOT DEFORMITY [None]
  - OSTEONECROSIS [None]
  - COLONIC POLYP [None]
  - HYPERLIPIDAEMIA [None]
  - PULMONARY GRANULOMA [None]
  - MASTICATION DISORDER [None]
  - PERIARTHRITIS [None]
  - BUNION [None]
  - CARDIOMEGALY [None]
  - MYOCARDIAL INFARCTION [None]
  - OESOPHAGEAL OBSTRUCTION [None]
  - PHIMOSIS [None]
  - SKIN GRAFT [None]
  - BASAL CELL CARCINOMA [None]
  - ACQUIRED OESOPHAGEAL WEB [None]
  - CERUMEN IMPACTION [None]
  - OSTEONECROSIS OF JAW [None]
  - ANXIETY [None]
  - ARTERIOSCLEROSIS CORONARY ARTERY [None]
  - SPINAL OSTEOARTHRITIS [None]
  - GLAUCOMA [None]
  - CONSTIPATION [None]
  - PAIN [None]
  - ANHEDONIA [None]
  - FEMUR FRACTURE [None]
  - PNEUMONIA [None]
  - OSTEOARTHRITIS [None]
  - PERIPHERAL VASCULAR DISORDER [None]
  - INJURY [None]
  - PROSTATE CANCER [None]
  - ACTINIC KERATOSIS [None]
  - INGUINAL HERNIA [None]
  - ABSCESS [None]
  - RENAL FAILURE CHRONIC [None]
  - ABSCESS JAW [None]
